FAERS Safety Report 13494454 (Version 1)
Quarter: 2017Q2

REPORT INFORMATION
  Report Type: Spontaneous
  Country: US (occurrence: US)
  Receive Date: 20170428
  Receipt Date: 20170428
  Transmission Date: 20170830
  Serious: No
  Sender: FDA-Public Use
  Company Number: US-TEVA-763711ACC

PATIENT
  Age: 22 Year
  Sex: Female
  Weight: 56.75 kg

DRUGS (1)
  1. PLAN B ONE-STEP [Suspect]
     Active Substance: LEVONORGESTREL
     Indication: POST COITAL CONTRACEPTION
     Dates: start: 20170329, end: 20170329

REACTIONS (7)
  - Menstruation irregular [Recovered/Resolved]
  - Constipation [Unknown]
  - Abdominal distension [Not Recovered/Not Resolved]
  - Menorrhagia [Recovered/Resolved]
  - Eructation [Unknown]
  - Gastrooesophageal reflux disease [Not Recovered/Not Resolved]
  - Dyspepsia [Unknown]

NARRATIVE: CASE EVENT DATE: 20170405
